FAERS Safety Report 7385024-7 (Version None)
Quarter: 2011Q1

REPORT INFORMATION
  Report Type: 
  Country: None (occurrence: None)
  Receive Date: 20110330
  Receipt Date: 20110316
  Transmission Date: 20110831
  Serious: Yes (Death, Life-Threatening, Hospitalization, Other)
  Sender: FDA-Public Use
  Company Number: FR-BAYER-201039991GPV

PATIENT
  Sex: Female
  Weight: 81 kg

DRUGS (15)
  1. CLOPIDOGREL [Suspect]
     Dosage: 75 MG, UNK
     Dates: start: 20101103
  2. ACETYLSALICYLIC ACID SRT [Suspect]
     Route: 048
     Dates: end: 20100517
  3. LANSOPRAZOLE [Concomitant]
  4. RIVAROXABAN [Suspect]
     Indication: ACUTE CORONARY SYNDROME
     Dosage: DOSAGE FORM: TABLET, 2.5 MG OR 5.0 MG
     Route: 048
     Dates: start: 20100518, end: 20100830
  5. INEGY [Concomitant]
     Indication: PRODUCT USED FOR UNKNOWN INDICATION
  6. CLOPIDOGREL [Suspect]
     Dosage: 75 MG, UNK
     Dates: start: 20100930, end: 20101020
  7. ACETYLSALICYLIC ACID SRT [Suspect]
     Dosage: 100 MG, UNK
     Route: 048
  8. PARACETAMOL [Concomitant]
  9. INIPOMP [Concomitant]
     Indication: PRODUCT USED FOR UNKNOWN INDICATION
  10. COTAREG [Concomitant]
  11. ACETYLSALICYLIC ACID SRT [Suspect]
     Route: 048
     Dates: end: 20100516
  12. ACETYLSALICYLIC ACID SRT [Suspect]
     Route: 048
     Dates: end: 20100517
  13. CLOPIDOGREL [Suspect]
     Dosage: 75 MG, UNK
     Dates: end: 20100928
  14. NEBIVOLOL HCL [Concomitant]
  15. PAROXETINE HCL [Concomitant]

REACTIONS (5)
  - PULMONARY EMBOLISM [None]
  - METASTATIC BRONCHIAL CARCINOMA [None]
  - BACK PAIN [None]
  - METASTASES TO LIVER [None]
  - HAEMOPTYSIS [None]
